FAERS Safety Report 12072520 (Version 1)
Quarter: 2016Q1

REPORT INFORMATION
  Report Type: Report from Study
  Country: IT (occurrence: IT)
  Receive Date: 20160212
  Receipt Date: 20160212
  Transmission Date: 20160526
  Serious: Yes (Death, Life-Threatening, Hospitalization)
  Sender: FDA-Public Use
  Company Number: IT-ACTAVIS-2016-02359

PATIENT
  Age: 79 Year
  Sex: Male

DRUGS (27)
  1. SOLDESAM [Concomitant]
     Active Substance: DEXAMETHASONE
     Indication: DYSPNOEA
     Dosage: 8 MG, DAILY
     Route: 042
     Dates: start: 20141014, end: 20141027
  2. SOLDESAM [Concomitant]
     Active Substance: DEXAMETHASONE
     Indication: PROPHYLACTIC CHEMOTHERAPY
     Dosage: 8 MG, BID
     Route: 030
     Dates: start: 20141030, end: 20141101
  3. SOLDESAM [Concomitant]
     Active Substance: DEXAMETHASONE
     Dosage: 20 MG, DAILY
     Route: 042
     Dates: start: 20141031, end: 20141031
  4. LEVOXACIN [Concomitant]
     Active Substance: LEVOFLOXACIN
     Indication: INFECTION PROPHYLAXIS
     Dosage: 500 MG, DAILY
     Route: 042
     Dates: start: 20141024, end: 20141026
  5. ALOXI [Concomitant]
     Active Substance: PALONOSETRON HYDROCHLORIDE
     Indication: PROPHYLACTIC CHEMOTHERAPY
     Dosage: 250 MCG, DAILY
     Route: 042
     Dates: start: 20141031, end: 20141031
  6. CUSTIRSEN [Suspect]
     Active Substance: CUSTIRSEN
     Indication: NON-SMALL CELL LUNG CANCER
     Dosage: 640 MG, DAY 1, 8 AND 15 OF A 21 DAY CYCLE
     Route: 042
     Dates: start: 20141022, end: 20141031
  7. FRAXIPARINA [Concomitant]
     Active Substance: NADROPARIN CALCIUM
     Indication: THROMBOSIS PROPHYLAXIS
     Dosage: 0.6 MG, DAILY
     Route: 058
     Dates: start: 20141024, end: 20141102
  8. FILGRASTIM [Concomitant]
     Active Substance: FILGRASTIM
     Indication: THROMBOCYTOPENIA
     Dosage: 300 MCG, DAILY
     Route: 058
     Dates: start: 20141103, end: 20141107
  9. PERFALGAN [Concomitant]
     Active Substance: ACETAMINOPHEN
     Indication: PYREXIA
     Dosage: 10 MG, DAILY
     Route: 042
     Dates: start: 20141103, end: 20141103
  10. CLEXANE [Concomitant]
     Active Substance: ENOXAPARIN SODIUM
     Indication: THROMBOSIS PROPHYLAXIS
     Dosage: 6000 IU, DAILY
     Route: 058
     Dates: start: 20141103, end: 20141106
  11. EUTIROX [Concomitant]
     Active Substance: LEVOTHYROXINE SODIUM
     Indication: HYPOTHYROIDISM
  12. AUGMENTIN [Concomitant]
     Active Substance: AMOXICILLIN\CLAVULANATE POTASSIUM
     Indication: INFECTION PROPHYLAXIS
     Dosage: 1 DF, BID
     Route: 048
     Dates: start: 20141024, end: 20141029
  13. PARACETAMOLO [Concomitant]
     Active Substance: ACETAMINOPHEN
     Indication: PROPHYLACTIC CHEMOTHERAPY
     Dosage: 500 MG, Q6H
     Route: 048
     Dates: start: 20141031, end: 20141101
  14. SIDERAL [Concomitant]
     Indication: ANAEMIA
     Dosage: 1 DF, DAILY
     Route: 048
     Dates: start: 2014
  15. CERNEVIT [Concomitant]
     Active Substance: VITAMINS
     Indication: ASTHENIA
     Dosage: 1 VIAL, DAILY
     Route: 042
     Dates: start: 20141014, end: 20141017
  16. RANITIDINE [Concomitant]
     Active Substance: RANITIDINE\RANITIDINE HYDROCHLORIDE
     Indication: PROPHYLACTIC CHEMOTHERAPY
     Dosage: 100 MG, DAILY
     Route: 042
     Dates: start: 20141031, end: 20141031
  17. TRIMETON [Concomitant]
     Active Substance: CHLORPHENIRAMINE MALEATE
     Indication: PROPHYLACTIC CHEMOTHERAPY
     Dosage: 10 MG, DAILY
     Route: 030
     Dates: start: 20141031, end: 20141031
  18. DELTACORTENE [Concomitant]
     Active Substance: PREDNISONE
     Indication: DYSPNOEA
     Dosage: 25 MG, BID
     Route: 048
     Dates: start: 20141103, end: 20141105
  19. DOCETAXEL (UNKNOWN) [Suspect]
     Active Substance: DOCETAXEL
     Indication: NON-SMALL CELL LUNG CANCER
     Dosage: 135 MG (25 MG/ M^2), DAY 1 OF A 21 DAY CYCLE
     Route: 042
     Dates: start: 20141031, end: 20141031
  20. EUTIROX [Concomitant]
     Active Substance: LEVOTHYROXINE SODIUM
     Indication: AUTOIMMUNE THYROIDITIS
     Dosage: 100 MCG, DAILY
     Route: 048
     Dates: start: 2000
  21. ZOLPIDEM [Concomitant]
     Active Substance: ZOLPIDEM\ZOLPIDEM TARTRATE
     Indication: ANXIETY
     Dosage: 10 MG, DAILY
     Route: 048
     Dates: start: 2013
  22. FLUOXETINE [Concomitant]
     Active Substance: FLUOXETINE HYDROCHLORIDE
     Indication: ANXIETY
     Dosage: 20 MG, DAILY
     Route: 048
     Dates: start: 2013
  23. BLOOD, WHOLE [Concomitant]
     Active Substance: WHOLE BLOOD
     Indication: ANAEMIA
     Dosage: 500 ML, BID
     Route: 042
     Dates: start: 20141030, end: 20141030
  24. ANTRA                              /00661201/ [Concomitant]
     Active Substance: OMEPRAZOLE
     Indication: PROPHYLAXIS
     Dosage: 40 MG, DAILY
     Route: 042
     Dates: start: 20141014, end: 20141027
  25. TACHIDOL [Concomitant]
     Active Substance: ACETAMINOPHEN\CODEINE PHOSPHATE
     Indication: PAIN
     Dosage: 215 MG, DAILY
     Route: 048
     Dates: start: 20141016
  26. PERFALGAN [Concomitant]
     Active Substance: ACETAMINOPHEN
     Indication: PROPHYLACTIC CHEMOTHERAPY
     Dosage: 1000 MG, DAILY
     Route: 042
     Dates: start: 20141031, end: 20141031
  27. PANTORC [Concomitant]
     Active Substance: PANTOPRAZOLE SODIUM
     Indication: PROPHYLAXIS
     Dosage: 40 MG, DAILY
     Route: 042
     Dates: start: 20141103, end: 20141105

REACTIONS (2)
  - Multiple organ dysfunction syndrome [Fatal]
  - Septic shock [Not Recovered/Not Resolved]

NARRATIVE: CASE EVENT DATE: 20141103
